FAERS Safety Report 9179493 (Version 2)
Quarter: 2013Q1

REPORT INFORMATION
  Report Type: Report from Study
  Country: FR (occurrence: FR)
  Receive Date: 20121029
  Receipt Date: 20130327
  Transmission Date: 20140127
  Serious: Yes (Hospitalization)
  Sender: FDA-Public Use
  Company Number: FR-MILLENNIUM PHARMACEUTICALS, INC.-2012-07390

PATIENT
  Sex: 0

DRUGS (21)
  1. VELCADE [Suspect]
     Indication: PLASMA CELL MYELOMA
     Dosage: 2.3 MG, UNK
     Route: 065
     Dates: start: 20120720, end: 20121129
  2. REVLIMID [Suspect]
     Indication: PLASMA CELL MYELOMA
     Dosage: 25 MG, UNK
     Route: 065
     Dates: start: 20120720, end: 20121202
  3. DEXAMETHASONE [Suspect]
     Indication: PLASMA CELL MYELOMA
     Dosage: 20 MG, UNK
     Route: 065
     Dates: start: 20120720, end: 20120910
  4. CYCLOPHOSPHAMIDE [Suspect]
     Indication: PLASMA CELL MYELOMA
     Dosage: UNK
     Route: 065
     Dates: start: 20121004
  5. SKENAN [Concomitant]
     Dosage: 60 MG, UNK
     Route: 048
  6. LIRAGLUTIDE [Concomitant]
     Dosage: UNK SI UNITS, UNK
     Route: 058
  7. STAGID [Concomitant]
     Route: 048
  8. GLYBURIDE (MICRONIZED) [Concomitant]
     Dosage: 5 MG, UNK
     Route: 048
  9. NISIS [Concomitant]
     Dosage: 80 MG, UNK
     Route: 048
  10. SIMVASTATINE [Concomitant]
     Dosage: 20 MG, UNK
     Route: 048
  11. PROPANOL                           /00030001/ [Concomitant]
     Dosage: 80 MG, UNK
     Route: 048
  12. MOVICOL                            /01053601/ [Concomitant]
     Dosage: UNK
     Route: 048
  13. MIRTAZAPINE [Concomitant]
     Route: 048
  14. DEPAKOTE [Concomitant]
     Route: 048
  15. AMOXICILLINE                       /00249602/ [Concomitant]
     Dosage: 3 G, UNK
     Route: 048
     Dates: start: 20120720
  16. BACTRIM [Concomitant]
     Dosage: UNK
     Route: 048
     Dates: start: 20120720
  17. LEDERFOLIN                         /00566702/ [Concomitant]
     Dosage: 25 MG, UNK
     Route: 048
     Dates: start: 20120720
  18. INNOHEP                            /00889602/ [Concomitant]
     Dosage: 4500 IU, UNK
     Route: 048
     Dates: start: 20120720
  19. ZELITREX                           /01269701/ [Concomitant]
     Dosage: 1 G, UNK
     Route: 048
     Dates: start: 20120720
  20. ZOMETA [Concomitant]
     Dosage: 4 MG, UNK
     Route: 048
     Dates: start: 20120720
  21. MOPRAL                             /00661201/ [Concomitant]
     Dosage: 20 MG, UNK
     Route: 048
     Dates: start: 20120720

REACTIONS (1)
  - Sigmoiditis [Recovered/Resolved with Sequelae]
